FAERS Safety Report 4766342-5 (Version None)
Quarter: 2005Q3

REPORT INFORMATION
  Report Type: 
  Country: None (occurrence: None)
  Receive Date: 20050906
  Receipt Date: 20050825
  Transmission Date: 20060218
  Serious: Yes (Death)
  Sender: FDA-Public Use
  Company Number: USA-2004-0013536

PATIENT
  Age: 41 Year
  Sex: Female
  Weight: 76.6 kg

DRUGS (9)
  1. OXYCONTIN [Suspect]
  2. HYDROCODONE BITARTRATE (HYDROCODONE BITARTRATE) [Suspect]
  3. FLUOXETINE [Suspect]
  4. CAFFEINE (CAFFEINE) [Suspect]
  5. METOCLOPRAMIDE [Suspect]
  6. NICOTINE [Suspect]
  7. ALPRAZOLAM [Suspect]
  8. CITALOPRAM (CITALOPRAM) [Suspect]
  9. GABAPENTIN [Suspect]

REACTIONS (8)
  - ACCIDENTAL DEATH [None]
  - ACCIDENTAL OVERDOSE [None]
  - CARDIOMEGALY [None]
  - CHRONIC OBSTRUCTIVE PULMONARY DISEASE [None]
  - DILATATION VENTRICULAR [None]
  - DRUG TOXICITY [None]
  - EMPHYSEMA [None]
  - LOSS OF CONSCIOUSNESS [None]
